FAERS Safety Report 18785256 (Version 2)
Quarter: 2021Q1

REPORT INFORMATION
  Report Type: Spontaneous
  Country: JP (occurrence: JP)
  Receive Date: 20210125
  Receipt Date: 20210219
  Transmission Date: 20210419
  Serious: Yes (Hospitalization, Other)
  Sender: FDA-Public Use
  Company Number: JP-FERRINGPH-2021FE00291

PATIENT
  Age: 75 Year
  Sex: Male
  Weight: 70.3 kg

DRUGS (7)
  1. BENZALIN [NITRAZEPAM] [Concomitant]
     Active Substance: NITRAZEPAM
     Indication: INSOMNIA
     Dosage: 5 MG, DAILY
     Route: 048
     Dates: start: 20201106
  2. WARFARIN [WARFARIN POTASSIUM] [Concomitant]
     Active Substance: WARFARIN POTASSIUM
     Indication: DEEP VEIN THROMBOSIS
     Dosage: 3 MG, DAILY
     Route: 065
     Dates: start: 20201221
  3. DEPAS [ETIZOLAM] [Concomitant]
     Active Substance: ETIZOLAM
     Indication: NEURALGIA
     Dosage: 0.5 MG, 3 TIMES DAILY (8 H)
     Route: 048
     Dates: start: 20110629
  4. MINIRINMELT [Suspect]
     Active Substance: DESMOPRESSIN ACETATE
     Indication: NOCTURIA
     Dosage: 50 UG, DAILY
     Route: 048
     Dates: start: 20201027
  5. ADALAT CC [Concomitant]
     Active Substance: NIFEDIPINE
     Indication: HYPERTENSION
     Dosage: 40 MG, DAILY
     Route: 048
     Dates: start: 20020614
  6. URINORM [BENZBROMARONE] [Concomitant]
     Indication: GOUT
     Dosage: 50 MG, DAILY
     Route: 048
     Dates: start: 20200110
  7. ONGLYZA [SAXAGLIPTIN] [Concomitant]
     Indication: TYPE 2 DIABETES MELLITUS
     Dosage: 2.5 MG, DAILY
     Route: 048
     Dates: start: 20150427

REACTIONS (5)
  - Pulmonary embolism [Not Recovered/Not Resolved]
  - Deep vein thrombosis [Recovered/Resolved]
  - Contraindicated product administered [Unknown]
  - Labelled drug-disease interaction medication error [Unknown]
  - Therapeutic response decreased [Unknown]

NARRATIVE: CASE EVENT DATE: 20201221
